FAERS Safety Report 16059900 (Version 1)
Quarter: 2019Q2

REPORT INFORMATION
  Report Type: Spontaneous
  Country: US (occurrence: US)
  Receive Date: 20190311
  Receipt Date: 20190311
  Transmission Date: 20190711
  Serious: Yes (Other)
  Sender: FDA-Public Use
  Company Number: None

PATIENT
  Age: 83 Year
  Sex: Male
  Weight: 60.3 kg

DRUGS (8)
  1. COLCRYS [Concomitant]
     Active Substance: COLCHICINE
  2. ZOLPIDEM [Concomitant]
     Active Substance: ZOLPIDEM\ZOLPIDEM TARTRATE
  3. ABIRATERONE. [Suspect]
     Active Substance: ABIRATERONE ACETATE
     Indication: PROSTATE CANCER
     Route: 048
     Dates: start: 20181018
  4. LORAZEPAM. [Concomitant]
     Active Substance: LORAZEPAM
  5. LUPRON [Concomitant]
     Active Substance: LEUPROLIDE ACETATE
  6. BETAMETHASONE. [Concomitant]
     Active Substance: BETAMETHASONE
  7. TRIAMCINOLONE [Concomitant]
     Active Substance: TRIAMCINOLONE
  8. KETOCONAZOLE. [Concomitant]
     Active Substance: KETOCONAZOLE

REACTIONS (1)
  - Salt diathesis [None]

NARRATIVE: CASE EVENT DATE: 20190218
